FAERS Safety Report 24195824 (Version 1)
Quarter: 2024Q3

REPORT INFORMATION
  Report Type: Spontaneous
  Country: TN (occurrence: TN)
  Receive Date: 20240809
  Receipt Date: 20240809
  Transmission Date: 20241017
  Serious: Yes (Other)
  Sender: BIOCON
  Company Number: TN-BIOCON BIOLOGICS LIMITED-BBL2024005727

PATIENT

DRUGS (1)
  1. TRASTUZUMAB [Suspect]
     Active Substance: TRASTUZUMAB
     Indication: Breast cancer
     Dosage: UNK
     Route: 065

REACTIONS (2)
  - Metastatic gastric cancer [Unknown]
  - Restrictive cardiomyopathy [Unknown]

NARRATIVE: CASE EVENT DATE: 20240201
